FAERS Safety Report 4587421-1 (Version None)
Quarter: 2005Q1

REPORT INFORMATION
  Report Type: 
  Country: None (occurrence: None)
  Receive Date: 20050218
  Receipt Date: 20050119
  Transmission Date: 20050727
  Serious: Yes (Death)
  Sender: FDA-Public Use
  Company Number: US-ABBOTT-05P-163-0287626-00

PATIENT
  Age: 77 Year
  Sex: Female
  Weight: 51.302 kg

DRUGS (2)
  1. DILAUDID [Suspect]
     Indication: PAIN
     Route: 042
     Dates: start: 20030106, end: 20030106
  2. CEFAZOLIN SODIUM [Concomitant]
     Indication: DRUG USE FOR UNKNOWN INDICATION
     Route: 042
     Dates: start: 20030106

REACTIONS (14)
  - ATELECTASIS [None]
  - BRAIN DEATH [None]
  - CARDIO-RESPIRATORY ARREST [None]
  - COMA [None]
  - CYANOSIS [None]
  - HYPOXIC ENCEPHALOPATHY [None]
  - INJURY [None]
  - LUNG INFILTRATION [None]
  - MYOCARDIAL INFARCTION [None]
  - PAIN [None]
  - PLEURAL EFFUSION [None]
  - SINUS BRADYCARDIA [None]
  - STATUS EPILEPTICUS [None]
  - UNEVALUABLE EVENT [None]
